FAERS Safety Report 25597897 (Version 1)
Quarter: 2025Q3

REPORT INFORMATION
  Report Type: Spontaneous
  Country: EU (occurrence: EU)
  Receive Date: 20250723
  Receipt Date: 20250723
  Transmission Date: 20251021
  Serious: Yes (Hospitalization, Other)
  Sender: MYLAN
  Company Number: None

PATIENT
  Age: 27 Year
  Sex: Male

DRUGS (16)
  1. LYRICA [Suspect]
     Active Substance: PREGABALIN
     Indication: Product used for unknown indication
     Dates: start: 20250330, end: 20250330
  2. LYRICA [Suspect]
     Active Substance: PREGABALIN
     Route: 048
     Dates: start: 20250330, end: 20250330
  3. LYRICA [Suspect]
     Active Substance: PREGABALIN
     Route: 048
     Dates: start: 20250330, end: 20250330
  4. LYRICA [Suspect]
     Active Substance: PREGABALIN
     Dates: start: 20250330, end: 20250330
  5. NITROUS OXIDE [Suspect]
     Active Substance: NITROUS OXIDE
     Indication: Product used for unknown indication
     Dosage: 5 DOSAGE FORM, QD,  5 CARTRIDGES PER DAY
  6. NITROUS OXIDE [Suspect]
     Active Substance: NITROUS OXIDE
     Dosage: 5 DOSAGE FORM, QD,  5 CARTRIDGES PER DAY
     Route: 055
  7. NITROUS OXIDE [Suspect]
     Active Substance: NITROUS OXIDE
     Dosage: 5 DOSAGE FORM, QD,  5 CARTRIDGES PER DAY
     Route: 055
  8. NITROUS OXIDE [Suspect]
     Active Substance: NITROUS OXIDE
     Dosage: 5 DOSAGE FORM, QD,  5 CARTRIDGES PER DAY
  9. CANNABIS SATIVA SUBSP. INDICA TOP [Suspect]
     Active Substance: CANNABIS SATIVA SUBSP. INDICA TOP
     Indication: Product used for unknown indication
  10. CANNABIS SATIVA SUBSP. INDICA TOP [Suspect]
     Active Substance: CANNABIS SATIVA SUBSP. INDICA TOP
     Route: 055
  11. CANNABIS SATIVA SUBSP. INDICA TOP [Suspect]
     Active Substance: CANNABIS SATIVA SUBSP. INDICA TOP
     Route: 055
  12. CANNABIS SATIVA SUBSP. INDICA TOP [Suspect]
     Active Substance: CANNABIS SATIVA SUBSP. INDICA TOP
  13. COCAINE [Suspect]
     Active Substance: COCAINE
     Indication: Product used for unknown indication
  14. COCAINE [Suspect]
     Active Substance: COCAINE
     Route: 065
  15. COCAINE [Suspect]
     Active Substance: COCAINE
     Route: 065
  16. COCAINE [Suspect]
     Active Substance: COCAINE

REACTIONS (4)
  - Substance abuse [Unknown]
  - Somnolence [Recovered/Resolved]
  - Intentional product misuse [Recovered/Resolved]
  - Paraesthesia [Recovered/Resolved]

NARRATIVE: CASE EVENT DATE: 20250330
